FAERS Safety Report 8396837-7 (Version None)
Quarter: 2012Q2

REPORT INFORMATION
  Report Type: 
  Country: None (occurrence: None)
  Receive Date: 20120530
  Receipt Date: 20120522
  Transmission Date: 20120825
  Serious: Yes (Death)
  Sender: FDA-Public Use
  Company Number: US-PFIZER INC-US-WYE-H13730710

PATIENT
  Age: 48 Year
  Sex: Female

DRUGS (7)
  1. OXYCODONE HYDROCHLORIDE [Suspect]
     Dosage: UNK
     Route: 048
     Dates: start: 20080101, end: 20080101
  2. LITHIUM [Suspect]
     Dosage: UNK
     Route: 048
     Dates: start: 20080101, end: 20080101
  3. METHADONE HCL [Suspect]
     Dosage: UNK
     Route: 048
     Dates: start: 20080101, end: 20080101
  4. QUETIAPINE [Suspect]
     Dosage: UNK
     Route: 048
     Dates: start: 20080101, end: 20080101
  5. VARENICLINE [Suspect]
     Dosage: UNK
     Route: 048
     Dates: start: 20080101, end: 20080101
  6. VENLAFAXINE HCL [Suspect]
     Dosage: UNK
     Route: 048
     Dates: start: 20080101, end: 20080101
  7. PROPOXYPHENE HYDROCHLORIDE [Suspect]
     Dosage: UNK
     Route: 048
     Dates: start: 20080101, end: 20080101

REACTIONS (1)
  - COMPLETED SUICIDE [None]
